FAERS Safety Report 6998070-X (Version None)
Quarter: 2010Q3

REPORT INFORMATION
  Report Type: 
  Country: None (occurrence: None)
  Receive Date: 20100920
  Receipt Date: 20070518
  Transmission Date: 20110219
  Serious: Yes (Hospitalization)
  Sender: FDA-Public Use
  Company Number: US-ASTRAZENECA-2006UW12272

PATIENT
  Age: 19379 Day
  Sex: Female
  Weight: 75.7 kg

DRUGS (17)
  1. SEROQUEL [Suspect]
     Indication: BIPOLAR DISORDER
     Dosage: STRENGTH 50MG, 100MG, 200MG.  DOSE 50MG-600MG
     Route: 048
     Dates: start: 19990513
  2. SEROQUEL [Suspect]
     Indication: SCHIZOPHRENIA
     Dosage: STRENGTH 50MG, 100MG, 200MG.  DOSE 50MG-600MG
     Route: 048
     Dates: start: 19990513
  3. ZYPREXA [Suspect]
     Dates: start: 20020502, end: 20060214
  4. ZYPREXA [Suspect]
  5. HALDOL [Concomitant]
     Dates: start: 20020722, end: 20020801
  6. RISPERDAL [Concomitant]
  7. THORAZINE [Concomitant]
  8. TRILAFON [Concomitant]
  9. CLONAZEPAM [Concomitant]
     Route: 048
  10. ESKALITH [Concomitant]
     Dosage: STRENGTH 300MG, 450MG, 600MG  DOSE 300MG-1350MG
  11. REMERON [Concomitant]
     Dosage: STRENGTH 15MG, 30MG, 45MG  DOSE 15MG-60MG DAILY
  12. WELLBUTRIN [Concomitant]
  13. EFFEXOR [Concomitant]
     Dosage: STRENGTH 75MG, 150MG  DOSE 150MG-300MG DAILY
  14. GABITRIL [Concomitant]
  15. IMIPRAMINE [Concomitant]
  16. NEURONTIN [Concomitant]
  17. ATIVAN [Concomitant]
     Dosage: 2 MG P.R.N. Q. 4 HOURS

REACTIONS (2)
  - DIABETES MELLITUS [None]
  - TYPE 2 DIABETES MELLITUS [None]
